FAERS Safety Report 24408281 (Version 7)
Quarter: 2025Q4

REPORT INFORMATION
  Report Type: Report from Study
  Country: US (occurrence: US)
  Receive Date: 20241007
  Receipt Date: 20251221
  Transmission Date: 20260118
  Serious: Yes (Other)
  Sender: PFIZER
  Company Number: US-PFIZER INC-202400270624

PATIENT
  Age: 69 Year
  Sex: Female

DRUGS (1)
  1. IBRANCE [Suspect]
     Active Substance: PALBOCICLIB
     Indication: Breast cancer female
     Dosage: DAILY WITH FOOD TAKE FOR 21 DAYS, THEN OFF FOR 7 DAYS/125 MG TABLET, 3 X 7 BLISTER PAK
     Route: 048

REACTIONS (4)
  - Spinal operation [Unknown]
  - Limb injury [Unknown]
  - Rotator cuff syndrome [Unknown]
  - Nerve injury [Not Recovered/Not Resolved]
